FAERS Safety Report 19897933 (Version 2)
Quarter: 2022Q4

REPORT INFORMATION
  Report Type: Report from Study
  Country: US (occurrence: US)
  Receive Date: 20210930
  Receipt Date: 20221004
  Transmission Date: 20230113
  Serious: Yes (Other)
  Sender: FDA-Public Use
  Company Number: US-SANOFI-00787321

PATIENT
  Sex: Female
  Weight: 59.8 kg

DRUGS (12)
  1. DUPILUMAB [Suspect]
     Active Substance: DUPILUMAB
     Indication: Nasal polyps
     Dosage: 300 MG, QOW
     Route: 058
     Dates: start: 20201224
  2. DUPILUMAB [Suspect]
     Active Substance: DUPILUMAB
     Indication: Ill-defined disorder
  3. OCUVITE [ASCORBIC ACID;BETACAROTENE;CUPRIC OXIDE;SODIUM SELENATE;TOCOP [Concomitant]
  4. VITAMIN D3 [Concomitant]
     Active Substance: CHOLECALCIFEROL
  5. ATORVASTATIN CALCIUM [Concomitant]
     Active Substance: ATORVASTATIN CALCIUM
  6. LOSARTAN POTASSIUM [Concomitant]
     Active Substance: LOSARTAN POTASSIUM
  7. VENLAFAXINE HCL [Concomitant]
     Active Substance: VENLAFAXINE HYDROCHLORIDE
  8. ESZOPICLONE [Concomitant]
     Active Substance: ESZOPICLONE
  9. MELOXICAM [Concomitant]
     Active Substance: MELOXICAM
  10. EXEMESTANE [Concomitant]
     Active Substance: EXEMESTANE
  11. GLUCOSAMINE [Concomitant]
     Active Substance: GLUCOSAMINE
  12. PROBIOTIC 10 [BIFIDOBACTERIUM BIFIDUM;BIFIDOBACTERIUM LACTIS;LACTOBACI [Concomitant]

REACTIONS (1)
  - Breast cancer female [Not Recovered/Not Resolved]
